FAERS Safety Report 24801772 (Version 1)
Quarter: 2025Q1

REPORT INFORMATION
  Report Type: Spontaneous
  Country: US (occurrence: US)
  Receive Date: 20250102
  Receipt Date: 20250102
  Transmission Date: 20250409
  Serious: No
  Sender: HLS THERAPEUTICS
  Company Number: US-HLS-202400105

PATIENT
  Age: 64 Year

DRUGS (1)
  1. CLOZARIL [Suspect]
     Active Substance: CLOZAPINE
     Indication: Bipolar I disorder
     Route: 065
     Dates: start: 2013

REACTIONS (1)
  - Off label use [Unknown]
